FAERS Safety Report 19010064 (Version 1)
Quarter: 2021Q1

REPORT INFORMATION
  Report Type: Spontaneous
  Country: DE (occurrence: DE)
  Receive Date: 20210316
  Receipt Date: 20210316
  Transmission Date: 20210420
  Serious: Yes (Hospitalization)
  Sender: FDA-Public Use
  Company Number: DE-TEVA-2021-DE-1890213

PATIENT
  Age: 74 Year
  Sex: Male

DRUGS (1)
  1. AMOXICILLIN/CLAVULANSAURE [Suspect]
     Active Substance: AMOXICILLIN\CLAVULANATE POTASSIUM
     Dosage: SINCE 25?NOV?2020
     Route: 065

REACTIONS (4)
  - Blister [Unknown]
  - Dyspnoea [Unknown]
  - Peripheral swelling [Unknown]
  - Oedema [Unknown]
